FAERS Safety Report 9103034 (Version 2)
Quarter: 2014Q1

REPORT INFORMATION
  Report Type: Spontaneous
  Country: US (occurrence: US)
  Receive Date: 20130219
  Receipt Date: 20140220
  Transmission Date: 20141002
  Serious: Yes (Other)
  Sender: FDA-Public Use
  Company Number: US-PFIZER INC-2013061578

PATIENT
  Age: 59 Year
  Sex: Female

DRUGS (9)
  1. LYRICA [Suspect]
     Indication: DIABETIC NEUROPATHY
     Dosage: 75 MG, 4X/DAY
     Route: 048
  2. NEXIUM [Concomitant]
     Dosage: UNK
  3. CELEXA [Concomitant]
     Dosage: UNK
  4. SYMBICORT [Concomitant]
     Dosage: UNK
  5. LANTUS [Concomitant]
     Dosage: UNK
  6. HUMALOG [Concomitant]
     Dosage: UNK
  7. BABY ASPIRIN [Concomitant]
     Dosage: UNK, 1X/DAY
  8. METFORMIN [Concomitant]
     Dosage: UNK
  9. TYLENOL PM [Concomitant]
     Dosage: UNK, 1X/DAY

REACTIONS (2)
  - Hypertension [Unknown]
  - Blood triglycerides increased [Unknown]
